FAERS Safety Report 22260351 (Version 1)
Quarter: 2023Q2

REPORT INFORMATION
  Report Type: Spontaneous
  Country: US (occurrence: None)
  Receive Date: 20230425
  Receipt Date: 20230425
  Transmission Date: 20230722
  Serious: Yes (Death)
  Sender: FDA-Public Use
  Company Number: None

PATIENT
  Age: 74 Year
  Sex: Female

DRUGS (22)
  1. PROLIA [Suspect]
     Active Substance: DENOSUMAB
     Indication: Osteoporosis
     Dosage: 60MG EVERY 6 MO SQ?
     Route: 058
     Dates: start: 20211119, end: 20230309
  2. VITAMIN D3 [Concomitant]
     Active Substance: CHOLECALCIFEROL
  3. FOLIC ACID [Concomitant]
     Active Substance: FOLIC ACID
  4. VITAMIN C [Suspect]
     Active Substance: ASCORBIC ACID
  5. ALDACTONE [Concomitant]
     Active Substance: SPIRONOLACTONE
  6. FUROSEMIDE [Concomitant]
     Active Substance: FUROSEMIDE
  7. GLIMEPIRIDE [Concomitant]
     Active Substance: GLIMEPIRIDE
  8. JARDIANCE [Concomitant]
     Active Substance: EMPAGLIFLOZIN
  9. KRISTALOSE [Concomitant]
     Active Substance: LACTULOSE
  10. PANTOPRAZOLE [Concomitant]
     Active Substance: PANTOPRAZOLE
  11. VITAMIN B12 [Concomitant]
     Active Substance: CYANOCOBALAMIN
  12. CIPROFLOXACIN [Concomitant]
     Active Substance: CIPROFLOXACIN
  13. FOLIC ACID [Concomitant]
     Active Substance: FOLIC ACID
  14. VITAMIN C [Concomitant]
     Active Substance: ASCORBIC ACID
  15. FUROSEMIDE [Concomitant]
     Active Substance: FUROSEMIDE
  16. GLIMEPIRIDE [Concomitant]
     Active Substance: GLIMEPIRIDE
  17. JARDIANCE [Concomitant]
     Active Substance: EMPAGLIFLOZIN
  18. KRISTALOSE PACKETS [Concomitant]
  19. PANTOPRAZOLE [Concomitant]
     Active Substance: PANTOPRAZOLE
  20. VITAMIN B12 [Concomitant]
     Active Substance: CYANOCOBALAMIN
  21. XIFAXAN [Concomitant]
     Active Substance: RIFAXIMIN
  22. CIPRO [Concomitant]
     Active Substance: CIPROFLOXACIN HYDROCHLORIDE

REACTIONS (1)
  - Death [None]

NARRATIVE: CASE EVENT DATE: 20230303
